FAERS Safety Report 7176806-5 (Version None)
Quarter: 2010Q4

REPORT INFORMATION
  Report Type: 
  Country: None (occurrence: None)
  Receive Date: 20101220
  Receipt Date: 20101210
  Transmission Date: 20110411
  Serious: Yes (Other)
  Sender: FDA-Public Use
  Company Number: CA-JNJFOC-20101204305

PATIENT
  Age: 40 Year
  Sex: Female

DRUGS (4)
  1. TERAZOL 7 [Suspect]
     Indication: ILL-DEFINED DISORDER
     Route: 067
  2. TERAZOL 7 [Suspect]
     Route: 067
  3. CIPRO [Concomitant]
     Route: 065
  4. IRON [Concomitant]
     Route: 065

REACTIONS (5)
  - ABNORMAL FAECES [None]
  - CHILLS [None]
  - HEPATIC PAIN [None]
  - IMPATIENCE [None]
  - SKIN IRRITATION [None]
